FAERS Safety Report 13141137 (Version 4)
Quarter: 2017Q2

REPORT INFORMATION
  Report Type: Spontaneous
  Country: CA (occurrence: CA)
  Receive Date: 20170123
  Receipt Date: 20170505
  Transmission Date: 20170830
  Serious: Yes (Disabling, Other)
  Sender: FDA-Public Use
  Company Number: CA-PFIZER INC-2017021143

PATIENT
  Age: 63 Year
  Sex: Female

DRUGS (2)
  1. XYLOCAINE [Suspect]
     Active Substance: LIDOCAINE HYDROCHLORIDE
     Indication: LOCAL ANAESTHESIA
     Dosage: 2 TO 3 ML, 1%
     Route: 058
  2. EPINEPHRINE. [Suspect]
     Active Substance: EPINEPHRINE
     Indication: LOCAL ANAESTHESIA
     Dosage: 1:100,000
     Route: 058

REACTIONS (1)
  - Extremity necrosis [Unknown]
